FAERS Safety Report 10519288 (Version 2)
Quarter: 2014Q4

REPORT INFORMATION
  Report Type: Report from Study
  Country: GB (occurrence: GB)
  Receive Date: 20141015
  Receipt Date: 20141015
  Transmission Date: 20150528
  Serious: Yes (Hospitalization, Other)
  Sender: FDA-Public Use
  Company Number: GB-GLAXOSMITHKLINE-B0917177D

PATIENT
  Age: 63 Year
  Sex: Female
  Weight: 54.9 kg

DRUGS (13)
  1. MAGNESIUM ASPARTATE [Concomitant]
     Active Substance: MAGNESIUM ASPARTATE
     Route: 048
     Dates: start: 20140611
  2. FRAGMIN [Concomitant]
     Active Substance: DALTEPARIN SODIUM
     Indication: THROMBOSIS PROPHYLAXIS
     Route: 058
     Dates: start: 20140610
  3. FRAGMIN [Concomitant]
     Active Substance: DALTEPARIN SODIUM
     Indication: THROMBOSIS PROPHYLAXIS
  4. OFATUMUMAB [Suspect]
     Active Substance: OFATUMUMAB
     Indication: RICHTER^S SYNDROME
     Dosage: MOST RECENT DOSE  19 FEB 2014
     Route: 042
     Dates: start: 20130807
  5. CYCLOPHOSPHAMIDE. [Concomitant]
     Active Substance: CYCLOPHOSPHAMIDE
     Indication: RICHTER^S SYNDROME
     Route: 042
     Dates: start: 20130808
  6. VINCRISTINE [Concomitant]
     Active Substance: VINCRISTINE
     Indication: RICHTER^S SYNDROME
     Route: 042
     Dates: start: 20130808
  7. ACICLOVIR [Concomitant]
     Active Substance: ACYCLOVIR
     Indication: PROPHYLAXIS
     Route: 048
     Dates: start: 20140610
  8. DOXORUBICIN [Concomitant]
     Active Substance: DOXORUBICIN
     Indication: RICHTER^S SYNDROME
     Route: 040
     Dates: start: 20130808
  9. G-CSF [Concomitant]
     Active Substance: FILGRASTIM
     Indication: NEUTROPENIC INFECTION
     Route: 058
     Dates: start: 20140610
  10. VANCOMYCIN [Concomitant]
     Active Substance: VANCOMYCIN
     Indication: ANTIBIOTIC THERAPY
     Route: 042
     Dates: start: 20140610
  11. PREDNISOLONE. [Concomitant]
     Active Substance: PREDNISOLONE
     Indication: RICHTER^S SYNDROME
     Route: 048
     Dates: start: 20130808
  12. SANDO-K [Concomitant]
     Active Substance: POTASSIUM BICARBONATE\POTASSIUM CHLORIDE
     Indication: MINERAL SUPPLEMENTATION
     Route: 048
     Dates: start: 20140610
  13. MEROPENEM. [Concomitant]
     Active Substance: MEROPENEM
     Indication: ANTIBIOTIC THERAPY
     Route: 042
     Dates: start: 20140610

REACTIONS (1)
  - Neutropenic sepsis [Recovered/Resolved]

NARRATIVE: CASE EVENT DATE: 20140610
